FAERS Safety Report 9008654 (Version 4)
Quarter: 2013Q1

REPORT INFORMATION
  Report Type: Spontaneous
  Country: US (occurrence: US)
  Receive Date: 20130111
  Receipt Date: 20130328
  Transmission Date: 20140127
  Serious: Yes (Other)
  Sender: FDA-Public Use
  Company Number: US-PFIZER INC-2013010715

PATIENT
  Age: 84 Year
  Sex: Female
  Weight: 69 kg

DRUGS (14)
  1. PREMARIN VAGINAL CREAM [Suspect]
     Indication: VULVOVAGINAL DRYNESS
     Dosage: 0.625 MG, DAILY
     Route: 067
     Dates: start: 20121025
  2. PREMARIN VAGINAL CREAM [Suspect]
     Indication: PROPHYLAXIS
     Dosage: UNK, DAILY
     Route: 067
  3. PREMARIN VAGINAL CREAM [Suspect]
     Indication: VULVOVAGINAL DRYNESS
  4. CIPROFLOXACIN [Suspect]
     Dosage: UNK
  5. MULTAQ [Concomitant]
     Indication: ATRIAL FIBRILLATION
     Dosage: 400 MG, 2X/DAY
     Route: 048
  6. DIFLUCAN [Concomitant]
     Dosage: 150 MG, 1X/DAY
     Route: 048
  7. PROAIR HFA [Concomitant]
     Dosage: 2 DF, 4X/DAY
  8. FLONASE [Concomitant]
     Dosage: 2 SPRAY EN DAILY #1 NASALINH
  9. DOXYCYCLINE MONOHYDRATE [Concomitant]
     Dosage: 50 MG, 1X/DAY
     Route: 048
  10. TRAMADOL HYDROCHLORIDE [Concomitant]
     Dosage: 50 MG, AS NEEDED
     Route: 048
  11. COUMADINE [Concomitant]
     Dosage: 5 MG, 1X/DAY
     Route: 048
  12. TYLENOL [Concomitant]
     Dosage: 325 MG, Q4HP
     Route: 048
  13. RANITIDINE HYDROCHLORIDE [Concomitant]
     Dosage: 150 MG, 2X/DAY
     Route: 048
  14. LORAZEPAM [Concomitant]
     Dosage: 0.5 MG, 2X/DAY
     Route: 048

REACTIONS (18)
  - Drug hypersensitivity [Unknown]
  - Pain [Recovering/Resolving]
  - Pruritus [Recovering/Resolving]
  - Vaginal odour [Recovering/Resolving]
  - Insomnia [Unknown]
  - Pain in extremity [Not Recovered/Not Resolved]
  - Urine odour abnormal [Recovered/Resolved]
  - Pollakiuria [Unknown]
  - Micturition urgency [Unknown]
  - Dysuria [Unknown]
  - Hypoaesthesia [Unknown]
  - Sleep disorder [Unknown]
  - Back pain [Unknown]
  - Chills [Unknown]
  - Product quality issue [Unknown]
  - Cystitis klebsiella [Unknown]
  - Urinary tract infection [Recovering/Resolving]
  - Local swelling [Unknown]
